FAERS Safety Report 7026354-8 (Version None)
Quarter: 2010Q4

REPORT INFORMATION
  Report Type: 
  Country: None (occurrence: None)
  Receive Date: 20101004
  Receipt Date: 20100929
  Transmission Date: 20110411
  Serious: Yes (Death, Hospitalization, Other)
  Sender: FDA-Public Use
  Company Number: US-ELI_LILLY_AND_COMPANY-US200910005192

PATIENT
  Sex: Male
  Weight: 120.18 kg

DRUGS (12)
  1. BYETTA [Suspect]
     Dosage: 10 UG, UNKNOWN
     Route: 065
     Dates: start: 20080117, end: 20080708
  2. GLIPIZIDE [Concomitant]
  3. METFORMIN HCL [Concomitant]
  4. RAMIPRIL [Concomitant]
  5. AVANDAMET [Concomitant]
  6. SIMCOR [Concomitant]
  7. LIPITOR [Concomitant]
  8. TRICOR [Concomitant]
  9. XANAX [Concomitant]
  10. FLAGYL [Concomitant]
  11. DILAUDID [Concomitant]
  12. VERSED [Concomitant]

REACTIONS (15)
  - BRAIN DEATH [None]
  - BRAIN INJURY [None]
  - CARDIO-RESPIRATORY ARREST [None]
  - DEHYDRATION [None]
  - DIZZINESS [None]
  - HYPOTENSION [None]
  - HYPOXIC-ISCHAEMIC ENCEPHALOPATHY [None]
  - PANCREATITIS ACUTE [None]
  - PULSE ABSENT [None]
  - RENAL FAILURE ACUTE [None]
  - RENAL INJURY [None]
  - SLEEP APNOEA SYNDROME [None]
  - UNRESPONSIVE TO STIMULI [None]
  - VENTRICULAR FIBRILLATION [None]
  - VENTRICULAR TACHYCARDIA [None]
